FAERS Safety Report 9732219 (Version 2)
Quarter: 2013Q4

REPORT INFORMATION
  Report Type: Spontaneous
  Country: DE (occurrence: DE)
  Receive Date: 20131205
  Receipt Date: 20131226
  Transmission Date: 20140711
  Serious: Yes (Other)
  Sender: FDA-Public Use
  Company Number: DE-UCBSA-104362

PATIENT
  Age: 25 Year
  Sex: Female

DRUGS (6)
  1. VIMPAT [Suspect]
     Indication: EPILEPSY
     Dosage: 100/100/200 MG
     Route: 048
     Dates: start: 2013, end: 201306
  2. VIMPAT [Suspect]
     Indication: EPILEPSY
     Dosage: STARTED ON 10-MAY
     Route: 048
     Dates: end: 20130516
  3. KEPPRA [Concomitant]
     Indication: EPILEPSY
     Dosage: FOR A LONG TIME
  4. LISKANTIN [Concomitant]
     Indication: EPILEPSY
     Dosage: FOR A LONG TIME
  5. CLOBAZAM [Concomitant]
     Indication: EPILEPSY
     Dosage: FOR A LONG TIME
  6. LAMOTRIGIN [Concomitant]
     Indication: EPILEPSY
     Dosage: FOR A LONG TIME

REACTIONS (4)
  - Severe myoclonic epilepsy of infancy [Recovered/Resolved]
  - Status epilepticus [Unknown]
  - Convulsion [Recovered/Resolved]
  - Pyrexia [Unknown]
